FAERS Safety Report 4422953-8 (Version None)
Quarter: 2004Q3

REPORT INFORMATION
  Report Type: 
  Country: None (occurrence: None)
  Receive Date: 20040810
  Receipt Date: 20040802
  Transmission Date: 20050211
  Serious: Yes (Life-Threatening)
  Sender: FDA-Public Use
  Company Number: 2004GB01875

PATIENT
  Age: 72 Year
  Sex: Male

DRUGS (1)
  1. CRESTOR [Suspect]
     Indication: HYPERLIPIDAEMIA
     Dosage: 20 MG DAILY PO
     Route: 048
     Dates: start: 20040428, end: 20040706

REACTIONS (5)
  - DIABETES MELLITUS INADEQUATE CONTROL [None]
  - DISTURBANCE IN ATTENTION [None]
  - HYPOGLYCAEMIA [None]
  - MEMORY IMPAIRMENT [None]
  - ROAD TRAFFIC ACCIDENT [None]
